FAERS Safety Report 8087244-5 (Version None)
Quarter: 2012Q1

REPORT INFORMATION
  Report Type: 
  Country: None (occurrence: None)
  Receive Date: 20120128
  Receipt Date: 20110516
  Transmission Date: 20120608
  Serious: No
  Sender: FDA-Public Use
  Company Number: US-ABBOTT-11P-163-0725728-00

PATIENT
  Sex: Female
  Weight: 78.088 kg

DRUGS (3)
  1. HUMIRA [Suspect]
     Route: 058
     Dates: start: 20101001
  2. HUMIRA [Suspect]
     Indication: PSORIATIC ARTHROPATHY
     Dosage: STOPPED DUE TO LACK OF INSURANCE.
     Route: 058
     Dates: start: 20100501, end: 20100701
  3. CELEXA [Concomitant]
     Indication: PRODUCT USED FOR UNKNOWN INDICATION

REACTIONS (6)
  - FEELING ABNORMAL [None]
  - OEDEMA PERIPHERAL [None]
  - RASH PRURITIC [None]
  - FATIGUE [None]
  - PAIN [None]
  - PYREXIA [None]
